FAERS Safety Report 22004829 (Version 3)
Quarter: 2023Q2

REPORT INFORMATION
  Report Type: Spontaneous
  Country: JP (occurrence: JP)
  Receive Date: 20230217
  Receipt Date: 20230626
  Transmission Date: 20230722
  Serious: Yes (Other)
  Sender: FDA-Public Use
  Company Number: JP-GLAXOSMITHKLINE-JP2023JPN025460

PATIENT

DRUGS (52)
  1. DAPRODUSTAT [Suspect]
     Active Substance: DAPRODUSTAT
     Indication: Nephrogenic anaemia
     Dosage: 4 MG, QD, BEFORE BEDTIME
     Route: 048
     Dates: start: 20220706, end: 20230222
  2. ATORVASTATIN OD TABLETS [Concomitant]
     Dosage: 10 MG, QD, AFTER BREAKFAST
     Route: 048
     Dates: start: 20220706
  3. FEBUXOSTAT [Concomitant]
     Active Substance: FEBUXOSTAT
     Dosage: 10 MG, QD, AFTER BREAKFAST
     Route: 048
     Dates: start: 20220706
  4. AMLODIPINE BESYLATE\AZILSARTAN [Concomitant]
     Active Substance: AMLODIPINE BESYLATE\AZILSARTAN
     Dosage: 1 DF, QD, AFTER BREAKFAST
     Route: 048
     Dates: start: 20220706
  5. PRECIPITATED CALCIUM CARBONATE TABLETS [Concomitant]
     Dosage: 500 MG, TID, RIGHT AFTER EVERY MEAL
     Route: 048
     Dates: start: 20220706
  6. FERRIC CITRATE ANHYDROUS [Concomitant]
     Active Substance: FERRIC CITRATE ANHYDROUS
     Dosage: 250 MG, TID, RIGHT AFTER EVERY MEAL
     Route: 048
     Dates: start: 20220706
  7. FERRIC CITRATE ANHYDROUS [Concomitant]
     Active Substance: FERRIC CITRATE ANHYDROUS
     Dosage: 500 MG, TID, RIGHT AFTER EVERY MEAL
     Route: 048
     Dates: start: 20230111
  8. LANTHANUM CARBONATE [Concomitant]
     Active Substance: LANTHANUM CARBONATE
     Dosage: 500 MG, TID, RIGHT AFTER EVERY MEAL
     Route: 048
     Dates: start: 20220706
  9. VONOPRAZAN FUMARATE [Concomitant]
     Active Substance: VONOPRAZAN FUMARATE
     Dosage: 10 MG, QD, AFTER DINNER
     Route: 048
     Dates: start: 20220706
  10. EVOCALCET [Concomitant]
     Active Substance: EVOCALCET
     Dosage: 2 MG, QD, BEFORE BEDTIME
     Route: 048
     Dates: start: 20220706
  11. LOXOPROFEN SODIUM DIHYDRATE [Concomitant]
     Active Substance: LOXOPROFEN SODIUM DIHYDRATE
     Dosage: 200 MG, QD
     Dates: start: 20220706
  12. LOXOPROFEN SODIUM DIHYDRATE [Concomitant]
     Active Substance: LOXOPROFEN SODIUM DIHYDRATE
     Dosage: 100 MG, QD
     Dates: start: 20230222
  13. LOXOPROFEN SODIUM DIHYDRATE [Concomitant]
     Active Substance: LOXOPROFEN SODIUM DIHYDRATE
     Dosage: UNK, PRN, SHOULDER, LOWER BACK
     Dates: start: 20230301
  14. LOXOPROFEN SODIUM DIHYDRATE [Concomitant]
     Active Substance: LOXOPROFEN SODIUM DIHYDRATE
     Dosage: 200 MG, QD
     Dates: start: 20230322
  15. FEXOFENADINE HYDROCHLORIDE [Concomitant]
     Active Substance: FEXOFENADINE HYDROCHLORIDE
     Dosage: 60 MG, QD, BEFORE BEDTIME
     Route: 048
     Dates: start: 20220706
  16. HEPARINOID OIL-BASED CREAM 0.3% [Concomitant]
     Dosage: UNK, QD
     Dates: start: 20220706
  17. HEPARINOID OIL-BASED CREAM 0.3% [Concomitant]
     Dosage: UNK, QD, MIXED WITH RESTAMIN KOWA
     Dates: start: 20221005
  18. LOTRIGA GRANULAR CAPSULE [Concomitant]
     Dosage: 2 G, QD, AFTER DINNER
     Route: 048
     Dates: start: 20220720
  19. LOTRIGA GRANULAR CAPSULE [Concomitant]
     Dosage: 4 G, QD, AFTER DINNER
     Route: 048
     Dates: start: 20221019
  20. LOTRIGA GRANULAR CAPSULE [Concomitant]
     Dosage: 2 G, QD, AFTER DINNER
     Route: 048
     Dates: start: 20221115
  21. LOTRIGA GRANULAR CAPSULE [Concomitant]
     Dosage: 4 G, QD, AFTER DINNER
     Route: 048
     Dates: start: 20230222
  22. ALFACALCIDOL CAPSULE [Concomitant]
     Dosage: 0.25 ?G, QD, AFTER DINNER
     Route: 048
     Dates: start: 20220720
  23. ALFACALCIDOL CAPSULE [Concomitant]
     Dosage: 0.5 ?G, QD, AFTER DINNER
     Route: 048
     Dates: start: 20220803
  24. ALFACALCIDOL CAPSULE [Concomitant]
     Dosage: 0.25 ?G, QD, AFTER DINNER
     Route: 048
     Dates: start: 20221005
  25. ALFACALCIDOL CAPSULE [Concomitant]
     Dosage: 0.5 ?G, QD, AFTER DINNER
     Route: 048
     Dates: start: 20221221
  26. ALFACALCIDOL CAPSULE [Concomitant]
     Dosage: 0.25 ?G, QD, AFTER DINNER
     Route: 048
     Dates: start: 20230111
  27. ALFACALCIDOL CAPSULE [Concomitant]
     Dosage: 0.5 ?G, QD, AFTER DINNER
     Route: 048
     Dates: start: 20230405
  28. ALLEGRA TABLETS [Concomitant]
     Dosage: 60 MG, QD, BEFORE BEDTIME
     Route: 048
     Dates: start: 20220824
  29. AZILVA TABLETS [Concomitant]
     Dosage: 10 MG, QD, AFTER BREAKFAST
     Route: 048
     Dates: start: 20220907
  30. ACETAMINOPHEN [Concomitant]
     Active Substance: ACETAMINOPHEN
     Dosage: 400 MG, QD, BEFORE BEDTIME
     Route: 048
     Dates: start: 20220929
  31. ACETAMINOPHEN [Concomitant]
     Active Substance: ACETAMINOPHEN
     Dosage: 400 MG, PRN
     Route: 048
     Dates: start: 20221019
  32. ACETAMINOPHEN [Concomitant]
     Active Substance: ACETAMINOPHEN
     Dosage: 400 MG, QD, BEFORE BEDTIME
     Route: 048
     Dates: start: 20221102
  33. ACETAMINOPHEN [Concomitant]
     Active Substance: ACETAMINOPHEN
     Dosage: 400 MG, QD, BEFORE BEDTIME + 400 MG, PRN(IN CASE OF PAIN)
     Route: 048
     Dates: start: 20221115
  34. ACETAMINOPHEN [Concomitant]
     Active Substance: ACETAMINOPHEN
     Dosage: UNK
  35. OLOPATADINE HYDROCHLORIDE OD TABLETS [Concomitant]
     Dosage: 5 MG, QD, BEFORE BEDTIME
     Route: 048
     Dates: start: 20221005
  36. DIPHENHYDRAMINE [Concomitant]
     Active Substance: DIPHENHYDRAMINE
     Dosage: UNK, QD, MIXED WITH HEPARINOID OIL-BASED CREAM
     Dates: start: 20221005
  37. HERBALS [Concomitant]
     Active Substance: HERBALS
     Dosage: 1 DF, QD, BEFORE BEDTIME
     Route: 048
     Dates: start: 20221102
  38. AMLODIPINE BESYLATE [Concomitant]
     Active Substance: AMLODIPINE BESYLATE
     Dosage: 2.5 MG, QD, AFTER BREAKFAST
     Route: 048
     Dates: start: 20221207
  39. AMLODIPINE BESYLATE [Concomitant]
     Active Substance: AMLODIPINE BESYLATE
     Dosage: 7.5 MG, QD, AFTER BREAKFAST
     Route: 048
     Dates: start: 20230111
  40. AMLODIPINE BESYLATE [Concomitant]
     Active Substance: AMLODIPINE BESYLATE
     Dosage: 5 MG, QD, AFTER BREAKFAST
     Route: 048
     Dates: start: 20230125
  41. LEVOFLOXACIN [Concomitant]
     Active Substance: LEVOFLOXACIN
     Indication: Prophylaxis
     Dosage: 500 MG, QD, AFTER DINNER
     Route: 048
     Dates: start: 20230202, end: 20230202
  42. ENTRESTO [Concomitant]
     Active Substance: SACUBITRIL\VALSARTAN
     Dosage: 100 MG, QD, AFTER BREAKFAST
     Route: 048
     Dates: start: 20230208
  43. ENTRESTO [Concomitant]
     Active Substance: SACUBITRIL\VALSARTAN
     Dosage: 200 MG, QD, AFTER BREAKFAST
     Dates: start: 20230322
  44. FEBUXOSTAT [Concomitant]
     Active Substance: FEBUXOSTAT
     Dosage: 10 MG, QD, AFTER BREAKFAST
     Route: 048
     Dates: start: 20230222
  45. MIRCERA INJECTION SYRINGE [Concomitant]
     Indication: Nephrogenic anaemia
     Dosage: 100 ?G
     Route: 030
     Dates: start: 20230222
  46. MIRCERA INJECTION SYRINGE [Concomitant]
     Dosage: 50 ?G
     Route: 058
     Dates: start: 20230301
  47. MIRCERA INJECTION SYRINGE [Concomitant]
     Dosage: 100 ?G
     Route: 030
     Dates: start: 20230405
  48. MIDAZOLAM [Concomitant]
     Active Substance: MIDAZOLAM
     Indication: Endoscopy upper gastrointestinal tract
     Dosage: 2+1
     Route: 042
     Dates: start: 20230118, end: 20230118
  49. MIDAZOLAM [Concomitant]
     Active Substance: MIDAZOLAM
     Dosage: UNK
     Dates: start: 20230308, end: 20230308
  50. PENTAZOCINE HYDROCHLORIDE [Concomitant]
     Active Substance: PENTAZOCINE HYDROCHLORIDE
     Indication: Endoscopy upper gastrointestinal tract
     Dosage: UNK
     Dates: start: 20230308, end: 20230308
  51. BUTYLSCOPOLAMINE BROMIDE [Concomitant]
     Active Substance: BUTYLSCOPOLAMINE BROMIDE
     Indication: Endoscopy upper gastrointestinal tract
     Dosage: UNK
     Dates: start: 20230308, end: 20230308
  52. DARBEPOETIN ALFA [Concomitant]
     Active Substance: DARBEPOETIN ALFA
     Indication: Nephrogenic anaemia
     Dosage: UNK

REACTIONS (20)
  - Colon cancer [Recovered/Resolved]
  - Ascites [Unknown]
  - Nephropathy toxic [Unknown]
  - Colorectal adenoma [Unknown]
  - Colitis [Unknown]
  - Lung infiltration [Unknown]
  - Hepatosplenomegaly [Unknown]
  - Liver disorder [Unknown]
  - Gallbladder enlargement [Unknown]
  - Renal atrophy [Unknown]
  - Renal cyst [Unknown]
  - Nephrolithiasis [Unknown]
  - Splenomegaly [Unknown]
  - Cholelithiasis [Unknown]
  - Hyperplastic cholecystopathy [Unknown]
  - Insomnia [Unknown]
  - Hypertension [Unknown]
  - Oral herpes [Unknown]
  - Abdominal distension [Unknown]
  - Conjunctivitis allergic [Unknown]

NARRATIVE: CASE EVENT DATE: 20230118
